FAERS Safety Report 7710391-1 (Version None)
Quarter: 2011Q3

REPORT INFORMATION
  Report Type: 
  Country: None (occurrence: None)
  Receive Date: 20110825
  Receipt Date: 20110817
  Transmission Date: 20111222
  Serious: Yes (Hospitalization)
  Sender: FDA-Public Use
  Company Number: GB-ELI_LILLY_AND_COMPANY-GB201108005896

PATIENT
  Age: 71 Year
  Sex: Male

DRUGS (2)
  1. ALIMTA [Suspect]
     Dosage: UNK, UNKNOWN
     Route: 065
  2. CARBOPLATIN [Concomitant]
     Dosage: UNK, UNKNOWN
     Route: 065

REACTIONS (3)
  - THERAPY RESPONDER [None]
  - BLINDNESS UNILATERAL [None]
  - PAPILLOEDEMA [None]
